FAERS Safety Report 4750700-9 (Version None)
Quarter: 2005Q3

REPORT INFORMATION
  Report Type: 
  Country: None (occurrence: None)
  Receive Date: 20050823
  Receipt Date: 20050817
  Transmission Date: 20060218
  Serious: Yes (Hospitalization)
  Sender: FDA-Public Use
  Company Number: 200517287GDDC

PATIENT
  Age: 53 Year
  Sex: Female

DRUGS (6)
  1. RIFADIN [Suspect]
     Indication: PULMONARY TUBERCULOSIS
     Route: 048
     Dates: start: 20050523
  2. ETHAMBUTOL HYDROCHLORIDE [Concomitant]
     Dosage: DOSE: UNK
     Route: 048
     Dates: start: 20050523
  3. PYRAMIDE [Concomitant]
     Dosage: DOSE: UNK
     Route: 048
     Dates: start: 20050523
  4. GATIFLO [Concomitant]
     Dosage: DOSE: UNK
     Dates: start: 20050523
  5. ISONIAZID [Concomitant]
     Dosage: DOSE: UNK
     Dates: start: 20050523
  6. STREPTOMYCIN SULFATE [Concomitant]
     Dosage: DOSE: UNK
     Route: 030
     Dates: start: 20050523

REACTIONS (2)
  - ANOREXIA [None]
  - PANCYTOPENIA [None]
